FAERS Safety Report 18628458 (Version 1)
Quarter: 2020Q4

REPORT INFORMATION
  Report Type: Spontaneous
  Country: US (occurrence: US)
  Receive Date: 20201217
  Receipt Date: 20201217
  Transmission Date: 20210114
  Serious: Yes (Hospitalization)
  Sender: FDA-Public Use
  Company Number: None

PATIENT
  Age: 41 Year
  Sex: Female
  Weight: 89.3 kg

DRUGS (1)
  1. ASPIRIN. [Suspect]
     Active Substance: ASPIRIN
     Dates: end: 20200813

REACTIONS (3)
  - Medical device removal [None]
  - Implant tissue necrosis [None]
  - Radiation injury [None]

NARRATIVE: CASE EVENT DATE: 20201020
